FAERS Safety Report 16262828 (Version 1)
Quarter: 2019Q2

REPORT INFORMATION
  Report Type: Spontaneous
  Country: DE (occurrence: DE)
  Receive Date: 20190502
  Receipt Date: 20190502
  Transmission Date: 20190711
  Serious: Yes (Hospitalization)
  Sender: FDA-Public Use
  Company Number: DE-009507513-1904DEU012421

PATIENT
  Age: 43 Year
  Sex: Female

DRUGS (5)
  1. AKINETON [Concomitant]
     Active Substance: BIPERIDEN HYDROCHLORIDE
  2. ZYPREXA [Concomitant]
     Active Substance: OLANZAPINE
  3. IMPLANON [Suspect]
     Active Substance: ETONOGESTREL
     Indication: CONTRACEPTION
  4. MELPERONE [Concomitant]
     Active Substance: MELPERONE
  5. HALDOL [Concomitant]
     Active Substance: HALOPERIDOL

REACTIONS (1)
  - Mental disorder [Unknown]
